FAERS Safety Report 17836097 (Version 2)
Quarter: 2020Q4

REPORT INFORMATION
  Report Type: Spontaneous
  Country: US (occurrence: US)
  Receive Date: 20200528
  Receipt Date: 20201020
  Transmission Date: 20210113
  Serious: No
  Sender: FDA-Public Use
  Company Number: US-PFIZER INC-2020210154

PATIENT
  Age: 72 Year
  Sex: Female

DRUGS (3)
  1. INLYTA [Suspect]
     Active Substance: AXITINIB
     Dosage: 1 MG
     Dates: start: 20201016
  2. INLYTA [Suspect]
     Active Substance: AXITINIB
     Dosage: LOWER DOSAGE
  3. INLYTA [Suspect]
     Active Substance: AXITINIB
     Dosage: 5 MG, 2X/DAY
     Dates: start: 20191201

REACTIONS (3)
  - Mucosal inflammation [Unknown]
  - Neoplasm progression [Unknown]
  - Hypertension [Unknown]
